FAERS Safety Report 21268811 (Version 1)
Quarter: 2022Q3

REPORT INFORMATION
  Report Type: Spontaneous
  Country: US (occurrence: US)
  Receive Date: 20220830
  Receipt Date: 20220830
  Transmission Date: 20221026
  Serious: No
  Sender: FDA-Public Use
  Company Number: US-TARO PHARMACEUTICALS USA INC.-2022TAR00146

PATIENT

DRUGS (1)
  1. CLOBETASOL PROPIONATE [Suspect]
     Active Substance: CLOBETASOL PROPIONATE
     Indication: Lichen sclerosus
     Dosage: UNK,A PEA-SIZED AMOUNT,APPLIED TO THE CLITORIS
     Route: 061

REACTIONS (2)
  - Anorectal discomfort [Not Recovered/Not Resolved]
  - Anal erythema [Not Recovered/Not Resolved]

NARRATIVE: CASE EVENT DATE: 20200101
